FAERS Safety Report 25913940 (Version 2)
Quarter: 2025Q4

REPORT INFORMATION
  Report Type: Spontaneous
  Country: TH (occurrence: TH)
  Receive Date: 20251013
  Receipt Date: 20251016
  Transmission Date: 20260118
  Serious: Yes (Hospitalization, Other)
  Sender: ALEXION PHARMACEUTICALS
  Company Number: TH-SA-2025SA300454

PATIENT
  Age: 1 Year
  Sex: Male

DRUGS (1)
  1. BEYFORTUS [Suspect]
     Active Substance: NIRSEVIMAB-ALIP
     Indication: Antiviral prophylaxis
     Dosage: 100 MILLIGRAM
     Route: 065
     Dates: start: 202507, end: 202507

REACTIONS (4)
  - Respiratory syncytial virus infection [Recovering/Resolving]
  - Drug ineffective [Unknown]
  - Lower respiratory tract infection viral [Recovering/Resolving]
  - Upper respiratory tract infection [Recovering/Resolving]

NARRATIVE: CASE EVENT DATE: 20250101
